FAERS Safety Report 7709824-6 (Version None)
Quarter: 2011Q3

REPORT INFORMATION
  Report Type: 
  Country: None (occurrence: None)
  Receive Date: 20110825
  Receipt Date: 20110822
  Transmission Date: 20111222
  Serious: Yes (Hospitalization)
  Sender: FDA-Public Use
  Company Number: DK-MERCK-1108DNK00005

PATIENT
  Sex: Female

DRUGS (2)
  1. NILOTINIB [Suspect]
     Route: 048
  2. ZOCOR [Suspect]
     Route: 048

REACTIONS (3)
  - CARDIAC FAILURE [None]
  - FLUID RETENTION [None]
  - DRUG INTERACTION [None]
